FAERS Safety Report 6715224-8 (Version None)
Quarter: 2010Q2

REPORT INFORMATION
  Report Type: 
  Country: None (occurrence: None)
  Receive Date: 20100507
  Receipt Date: 20100503
  Transmission Date: 20101027
  Serious: Yes (Other)
  Sender: FDA-Public Use
  Company Number: US-ALLERGAN-1005745US

PATIENT
  Age: 76 Year
  Sex: Female

DRUGS (1)
  1. ACUVAIL [Suspect]
     Indication: PREOPERATIVE CARE
     Dosage: 1 GTT, BID
     Dates: start: 20100201, end: 20100224

REACTIONS (1)
  - MACULAR OEDEMA [None]
